FAERS Safety Report 9532325 (Version 2)
Quarter: 2013Q3

REPORT INFORMATION
  Report Type: Report from Study
  Country: US (occurrence: US)
  Receive Date: 20130918
  Receipt Date: 20130918
  Transmission Date: 20140515
  Serious: Yes (Death, Hospitalization)
  Sender: FDA-Public Use
  Company Number: US-ACTELION-A-NJ2012-65209

PATIENT
  Age: 33 Year
  Sex: Female

DRUGS (1)
  1. TRACLEER [Suspect]
     Indication: PULMONARY ARTERIAL HYPERTENSION
     Dosage: UNK
     Route: 048
     Dates: end: 2011

REACTIONS (7)
  - Death [Fatal]
  - Pulmonary hypertension [Unknown]
  - Dyspnoea [Unknown]
  - Paracentesis [Recovering/Resolving]
  - Malaise [Unknown]
  - Fluid overload [Unknown]
  - Exercise tolerance decreased [Unknown]
